FAERS Safety Report 12263139 (Version 1)
Quarter: 2016Q2

REPORT INFORMATION
  Report Type: Spontaneous
  Country: DK (occurrence: DK)
  Receive Date: 20160413
  Receipt Date: 20160413
  Transmission Date: 20160815
  Serious: Yes (Hospitalization)
  Sender: FDA-Public Use
  Company Number: DK-ROCHE-1739253

PATIENT
  Age: 51 Year
  Sex: Female
  Weight: 87.08 kg

DRUGS (2)
  1. LIRAGLUTIDE [Interacting]
     Active Substance: LIRAGLUTIDE
     Indication: OBESITY
     Dosage: FORM STRENGTH: 6 MG/ML
     Route: 058
     Dates: start: 20160122, end: 20160304
  2. XOLAIR [Suspect]
     Active Substance: OMALIZUMAB
     Indication: PRODUCT USED FOR UNKNOWN INDICATION
     Route: 065
     Dates: start: 20160219

REACTIONS (6)
  - Haematochezia [Unknown]
  - Dehydration [Unknown]
  - Vomiting [Not Recovered/Not Resolved]
  - Drug interaction [Unknown]
  - Cardiovascular disorder [Unknown]
  - Rectal haemorrhage [Not Recovered/Not Resolved]

NARRATIVE: CASE EVENT DATE: 20160304
